FAERS Safety Report 11556065 (Version 1)
Quarter: 2015Q3

REPORT INFORMATION
  Report Type: Spontaneous
  Country: US (occurrence: US)
  Receive Date: 20150925
  Receipt Date: 20150925
  Transmission Date: 20151125
  Serious: No
  Sender: FDA-Public Use
  Company Number: US-WATSON-2014-28417

PATIENT
  Age: 52 Year
  Sex: Female
  Weight: 70.29 kg

DRUGS (4)
  1. DEXILANT [Concomitant]
     Active Substance: DEXLANSOPRAZOLE
     Indication: GASTROOESOPHAGEAL REFLUX DISEASE
     Dosage: 30 MG, BID
     Route: 048
     Dates: start: 201204
  2. CARAFATE [Suspect]
     Active Substance: SUCRALFATE
     Dosage: 1 G, TID
     Route: 048
     Dates: start: 201409
  3. CARAFATE [Suspect]
     Active Substance: SUCRALFATE
     Dosage: 1 G, TID
     Route: 048
     Dates: start: 2014
  4. CARAFATE [Suspect]
     Active Substance: SUCRALFATE
     Indication: BARRETT^S OESOPHAGUS
     Dosage: 1 G, TID
     Route: 048
     Dates: start: 201204

REACTIONS (2)
  - Throat irritation [Recovered/Resolved]
  - Off label use [Not Recovered/Not Resolved]

NARRATIVE: CASE EVENT DATE: 201204
